FAERS Safety Report 14897789 (Version 1)
Quarter: 2018Q2

REPORT INFORMATION
  Report Type: Spontaneous
  Country: US (occurrence: US)
  Receive Date: 20180515
  Receipt Date: 20180515
  Transmission Date: 20180711
  Serious: Yes (Other)
  Sender: FDA-Public Use
  Company Number: US-MYLANLABS-2018M1031594

PATIENT
  Age: 79 Year
  Sex: Male

DRUGS (3)
  1. ZOLEDRONIC ACID [Suspect]
     Active Substance: ZOLEDRONIC ACID
     Indication: OSTEOPOROSIS
     Dosage: RECEIVED A SINGLE INFUSION
     Route: 050
  2. RISEDRONATE [Suspect]
     Active Substance: RISEDRONATE SODIUM
     Indication: OSTEOPOROSIS
     Dosage: HAD BEEN TREATED MONTHLY FOR 3 YEARS
     Route: 065
  3. ALENDRONATE [Suspect]
     Active Substance: ALENDRONATE SODIUM
     Indication: OSTEOPOROSIS
     Dosage: HAD BEEN TREATED FOR 5 YEARS WITH WEEKLY TREATMENT
     Route: 065

REACTIONS (2)
  - Atypical fracture [Recovering/Resolving]
  - Fibula fracture [Recovering/Resolving]
